FAERS Safety Report 6373867-8 (Version None)
Quarter: 2009Q3

REPORT INFORMATION
  Report Type: 
  Country: None (occurrence: None)
  Receive Date: 20090924
  Receipt Date: 20090512
  Transmission Date: 20100115
  Serious: No
  Sender: FDA-Public Use
  Company Number: US-ASTRAZENECA-2009UW12210

PATIENT
  Age: 36 Year
  Sex: Female

DRUGS (2)
  1. SEROQUEL XR [Suspect]
     Route: 048
  2. LEVOXYL [Concomitant]

REACTIONS (4)
  - AKATHISIA [None]
  - FEELING ABNORMAL [None]
  - HALLUCINATION [None]
  - TREMOR [None]
